FAERS Safety Report 24453097 (Version 1)
Quarter: 2024Q4

REPORT INFORMATION
  Report Type: Spontaneous
  Country: US (occurrence: US)
  Receive Date: 20241017
  Receipt Date: 20241017
  Transmission Date: 20250115
  Serious: No
  Sender: SUNOVION
  Company Number: US-UROVANT SCIENCES GMBH-202404-URV-000468

PATIENT
  Age: 88 Year
  Sex: Male

DRUGS (5)
  1. GEMTESA [Suspect]
     Active Substance: VIBEGRON
     Dosage: 1 TAB, QD EVERY MORNING AROUND 9 AM
     Route: 065
     Dates: start: 202401
  2. GEMTESA [Suspect]
     Active Substance: VIBEGRON
     Indication: Enuresis
  3. GEMTESA [Suspect]
     Active Substance: VIBEGRON
     Indication: Hypertonic bladder
  4. GEMTESA [Suspect]
     Active Substance: VIBEGRON
     Indication: Urinary incontinence
  5. IRON [Concomitant]
     Active Substance: IRON
     Indication: Product used for unknown indication
     Dosage: UNK

REACTIONS (2)
  - Drug ineffective [Unknown]
  - Intentional dose omission [Unknown]

NARRATIVE: CASE EVENT DATE: 20240401
